FAERS Safety Report 8461522-X (Version None)
Quarter: 2012Q2

REPORT INFORMATION
  Report Type: 
  Country: None (occurrence: None)
  Receive Date: 20120625
  Receipt Date: 20120612
  Transmission Date: 20120825
  Serious: Yes (Other)
  Sender: FDA-Public Use
  Company Number: US-SANOFI-AVENTIS-2012SA042223

PATIENT
  Age: 82 Year
  Sex: Female
  Weight: 56.8 kg

DRUGS (9)
  1. NIFEDIPINE [Concomitant]
  2. FESOTERODINE [Suspect]
     Dates: start: 20120302, end: 20120501
  3. PLAVIX [Suspect]
     Route: 048
  4. PROTONIX [Suspect]
  5. CYMBALTA [Suspect]
  6. PRAVACHOL [Concomitant]
  7. BACTRIM DS [Concomitant]
  8. CELEBREX [Concomitant]
     Indication: ARTHRITIS
  9. TRAZODONE HCL [Concomitant]
     Indication: DEPRESSION

REACTIONS (16)
  - GASTRITIS [None]
  - SWOLLEN TONGUE [None]
  - DRY EYE [None]
  - PHARYNGEAL OEDEMA [None]
  - RASH [None]
  - WEIGHT DECREASED [None]
  - CONTUSION [None]
  - HEADACHE [None]
  - SWELLING [None]
  - BACK PAIN [None]
  - COUGH [None]
  - DRY MOUTH [None]
  - URINARY TRACT DISORDER [None]
  - NAUSEA [None]
  - CONSTIPATION [None]
  - DRUG INEFFECTIVE [None]
